FAERS Safety Report 16183448 (Version 2)
Quarter: 2019Q4

REPORT INFORMATION
  Report Type: Spontaneous
  Country: SE (occurrence: SE)
  Receive Date: 20190411
  Receipt Date: 20191120
  Transmission Date: 20200122
  Serious: Yes (Hospitalization)
  Sender: FDA-Public Use
  Company Number: SE-JNJFOC-20190409413

PATIENT
  Age: 27 Year
  Sex: Male

DRUGS (6)
  1. GENSUMYCIN [Suspect]
     Active Substance: GENTAMICIN
     Indication: STAPHYLOCOCCAL SEPSIS
     Dosage: 280 MG, Q3W
     Route: 042
     Dates: start: 20111007, end: 20111025
  2. BENZYLPENICILLIN SODIUM [Concomitant]
     Active Substance: PENICILLIN G SODIUM
     Indication: PRODUCT USED FOR UNKNOWN INDICATION
     Route: 065
  3. EKVACILLIN [Concomitant]
     Active Substance: CLOXACILLIN SODIUM
     Indication: PRODUCT USED FOR UNKNOWN INDICATION
     Route: 065
  4. IBUPROFEN. [Suspect]
     Active Substance: IBUPROFEN
     Indication: PRODUCT USED FOR UNKNOWN INDICATION
     Dosage: 400 MG,QD
     Route: 048
     Dates: start: 20111008, end: 20111023
  5. VANCOMYCIN [Suspect]
     Active Substance: VANCOMYCIN
     Indication: STAPHYLOCOCCAL SEPSIS
     Dosage: 2 G, QD
     Route: 042
     Dates: start: 20111008, end: 20111025
  6. AVELOX [Concomitant]
     Active Substance: MOXIFLOXACIN HYDROCHLORIDE
     Indication: PRODUCT USED FOR UNKNOWN INDICATION
     Route: 065

REACTIONS (1)
  - Acute kidney injury [Recovered/Resolved]

NARRATIVE: CASE EVENT DATE: 20111025
